FAERS Safety Report 17243362 (Version 1)
Quarter: 2020Q1

REPORT INFORMATION
  Report Type: Spontaneous
  Country: US (occurrence: US)
  Receive Date: 20200106
  Receipt Date: 20200106
  Transmission Date: 20200409
  Serious: Yes (Other)
  Sender: FDA-Public Use
  Company Number: None

PATIENT
  Sex: Male

DRUGS (8)
  1. HUMIRA [Suspect]
     Active Substance: ADALIMUMAB
     Route: 058
     Dates: start: 20190204
  2. CARVEDILOL TAB 25MG [Concomitant]
     Dates: start: 20190412
  3. CLOPIDOGREL TAB 75MG [Concomitant]
     Dates: start: 20190806
  4. AMLODIPINE [Concomitant]
     Active Substance: AMLODIPINE BESYLATE
     Dates: start: 20190412
  5. ATORVASTATIN TAB 40MG [Concomitant]
     Dates: start: 20190412
  6. LISINAP/HCTZ TAB 20-125 [Concomitant]
     Dates: start: 20190412
  7. FENOFIBRATE TAB 145MG [Concomitant]
  8. SYNJARDY XR TAB 5-1000MG [Concomitant]
     Dates: start: 20190417

REACTIONS (3)
  - Pain [None]
  - Depression [None]
  - Condition aggravated [None]

NARRATIVE: CASE EVENT DATE: 20200106
